FAERS Safety Report 10985666 (Version 1)
Quarter: 2015Q2

REPORT INFORMATION
  Report Type: Spontaneous
  Country: US (occurrence: US)
  Receive Date: 20150404
  Receipt Date: 20150404
  Transmission Date: 20150821
  Serious: No
  Sender: FDA-Public Use
  Company Number: US-SA-2015SA023666

PATIENT
  Age: 81 Year
  Sex: Male

DRUGS (1)
  1. ALLEGRA-D [Suspect]
     Active Substance: FEXOFENADINE\PSEUDOEPHEDRINE
     Dosage: TAKEN FROM LAST THREE DAYS.
     Route: 048
     Dates: start: 20150217

REACTIONS (4)
  - Nervousness [Unknown]
  - Euphoric mood [Unknown]
  - Insomnia [Unknown]
  - Feeling abnormal [Unknown]
